FAERS Safety Report 24017025 (Version 8)
Quarter: 2025Q1

REPORT INFORMATION
  Report Type: Report from Study
  Country: JP (occurrence: JP)
  Receive Date: 20240626
  Receipt Date: 20250102
  Transmission Date: 20250408
  Serious: Yes (Hospitalization)
  Sender: JOHNSON AND JOHNSON
  Company Number: JP-JNJFOC-20240547909

PATIENT
  Age: 84 Year
  Sex: Male

DRUGS (9)
  1. ERLEADA [Suspect]
     Active Substance: APALUTAMIDE
     Indication: Prostate cancer metastatic
     Route: 048
     Dates: start: 20240503, end: 2024
  2. ERLEADA [Suspect]
     Active Substance: APALUTAMIDE
     Route: 048
     Dates: start: 2024
  3. MIROGABALIN BESYLATE [Concomitant]
     Active Substance: MIROGABALIN BESYLATE
     Indication: Pain
     Route: 048
  4. CALONAL [Concomitant]
     Active Substance: ACETAMINOPHEN
     Indication: Pain
     Route: 048
  5. DEGARELIX [Concomitant]
     Active Substance: DEGARELIX
     Indication: Prostate cancer metastatic
     Route: 058
     Dates: start: 20240509
  6. BILASTINE [Concomitant]
     Active Substance: BILASTINE
     Indication: Pruritus
     Route: 048
     Dates: start: 20240523
  7. MYSER [Concomitant]
     Indication: Pruritus
     Route: 061
     Dates: start: 20240523
  8. SENNOSIDES [Concomitant]
     Active Substance: SENNOSIDES
     Indication: Constipation
     Route: 048
     Dates: start: 2024
  9. PREGABALIN [Concomitant]
     Active Substance: PREGABALIN
     Indication: Hypoaesthesia
     Route: 048
     Dates: start: 20240905

REACTIONS (14)
  - Carpal tunnel syndrome [Not Recovered/Not Resolved]
  - Large intestine polyp [Not Recovered/Not Resolved]
  - Eczema [Recovering/Resolving]
  - Temperature regulation disorder [Not Recovered/Not Resolved]
  - Gait disturbance [Recovered/Resolved]
  - Constipation [Recovering/Resolving]
  - Product dose omission issue [Recovered/Resolved]
  - Injection site pain [Not Recovered/Not Resolved]
  - Pruritus [Recovering/Resolving]
  - Blood alkaline phosphatase increased [Not Recovered/Not Resolved]
  - Irritability [Not Recovered/Not Resolved]
  - White blood cell count decreased [Not Recovered/Not Resolved]
  - Platelet count decreased [Not Recovered/Not Resolved]
  - Red blood cell count decreased [Not Recovered/Not Resolved]

NARRATIVE: CASE EVENT DATE: 20240101
